FAERS Safety Report 7862926-6 (Version None)
Quarter: 2011Q4

REPORT INFORMATION
  Report Type: 
  Country: None (occurrence: None)
  Receive Date: 20111027
  Receipt Date: 20101118
  Transmission Date: 20120403
  Serious: No
  Sender: FDA-Public Use
  Company Number: US-AMGEN-KDL353101

PATIENT
  Age: 69 Year
  Sex: Female

DRUGS (7)
  1. PREDNISONE [Concomitant]
  2. METHOTREXATE [Concomitant]
     Dosage: UNK UNK, UNK
  3. ZOLPIDEM [Concomitant]
  4. TOPROL-XL [Concomitant]
  5. SIMVASTATIN [Concomitant]
  6. ENBREL [Suspect]
     Dates: start: 20000201, end: 20101018
  7. ENBREL [Suspect]
     Indication: RHEUMATOID ARTHRITIS
     Dosage: 50 MG, QWK
     Route: 058
     Dates: start: 20000201

REACTIONS (10)
  - CHILLS [None]
  - HYPOKINESIA [None]
  - FOOT DEFORMITY [None]
  - PAIN IN EXTREMITY [None]
  - ASTHENIA [None]
  - MALAISE [None]
  - WHITE BLOOD CELL COUNT INCREASED [None]
  - NAUSEA [None]
  - TENDON OPERATION [None]
  - PYREXIA [None]
